FAERS Safety Report 7802651-0 (Version None)
Quarter: 2011Q4

REPORT INFORMATION
  Report Type: 
  Country: None (occurrence: None)
  Receive Date: 20111007
  Receipt Date: 20110930
  Transmission Date: 20120403
  Serious: Yes (Other)
  Sender: FDA-Public Use
  Company Number: PHHY2011AR87126

PATIENT
  Sex: Male

DRUGS (1)
  1. ONBREZ [Suspect]
     Indication: EMPHYSEMA
     Dosage: 1 DF, QD

REACTIONS (1)
  - PROSTATIC SPECIFIC ANTIGEN ABNORMAL [None]
